FAERS Safety Report 5156412-4 (Version None)
Quarter: 2006Q4

REPORT INFORMATION
  Report Type: 
  Country: None (occurrence: None)
  Receive Date: 20061122
  Receipt Date: 20050506
  Transmission Date: 20070319
  Serious: Yes (Other)
  Sender: FDA-Public Use
  Company Number: GR-ABBOTT-05P-066-0300188-00

PATIENT
  Age: 29 Year
  Sex: Female

DRUGS (4)
  1. REDUCTIL [Suspect]
     Indication: OBESITY
     Route: 048
     Dates: start: 20050401, end: 20050429
  2. REDUCTIL [Suspect]
  3. AMOXICILLIN [Concomitant]
     Indication: TONSILLITIS
     Route: 048
  4. IRON PROTEIN SUCC [Concomitant]
     Indication: PREGNANCY
     Route: 048

REACTIONS (1)
  - ABORTION INDUCED [None]
